FAERS Safety Report 7330759-5 (Version None)
Quarter: 2011Q1

REPORT INFORMATION
  Report Type: 
  Country: None (occurrence: None)
  Receive Date: 20110225
  Receipt Date: 20110225
  Transmission Date: 20110831
  Serious: Yes (Hospitalization)
  Sender: FDA-Public Use
  Company Number: None

PATIENT
  Age: 57 Year
  Sex: Female
  Weight: 80.9 kg

DRUGS (2)
  1. GEMFIBROZIL [Suspect]
     Dosage: 600 MG BID PO
     Route: 048
     Dates: start: 20091223
  2. ACETAMINOPHEN AND HYDROCODONE BITARTRATE [Suspect]
     Dosage: 15/1000 6/DAY MG PO
     Route: 048
     Dates: start: 20110207, end: 20110222

REACTIONS (10)
  - OVERDOSE [None]
  - VOMITING [None]
  - HEPATIC ENZYME INCREASED [None]
  - ASTHENIA [None]
  - FATIGUE [None]
  - MELANOCYTIC NAEVUS [None]
  - HAIR TEXTURE ABNORMAL [None]
  - NAUSEA [None]
  - WEIGHT INCREASED [None]
  - DRY SKIN [None]
